FAERS Safety Report 4657640-4 (Version None)
Quarter: 2005Q2

REPORT INFORMATION
  Report Type: 
  Country: None (occurrence: None)
  Receive Date: 20050510
  Receipt Date: 20050504
  Transmission Date: 20051028
  Serious: Yes (Hospitalization)
  Sender: FDA-Public Use
  Company Number: 200513983GDDC

PATIENT
  Age: 9 Year
  Sex: Male

DRUGS (1)
  1. MINIRIN [Suspect]
     Route: 045
     Dates: start: 20050414, end: 20050419

REACTIONS (6)
  - ABDOMINAL PAIN [None]
  - AGITATION [None]
  - CONFUSIONAL STATE [None]
  - HYPONATRAEMIA [None]
  - INTRACRANIAL PRESSURE INCREASED [None]
  - VOMITING [None]
